FAERS Safety Report 16606954 (Version 1)
Quarter: 2019Q3

REPORT INFORMATION
  Report Type: Spontaneous
  Country: US (occurrence: US)
  Receive Date: 20190722
  Receipt Date: 20190722
  Transmission Date: 20191004
  Serious: No
  Sender: FDA-Public Use
  Company Number: US-GLAXOSMITHKLINE-US2019128709

PATIENT
  Age: 37 Year
  Sex: Female

DRUGS (1)
  1. ABREVA [Suspect]
     Active Substance: DOCOSANOL
     Indication: CHAPPED LIPS
     Dosage: 5 TIMES DAILY, QD
     Dates: start: 20190710

REACTIONS (3)
  - Oral herpes [Unknown]
  - Product use in unapproved indication [Unknown]
  - Condition aggravated [Unknown]

NARRATIVE: CASE EVENT DATE: 20190710
